FAERS Safety Report 4965023-2 (Version None)
Quarter: 2006Q2

REPORT INFORMATION
  Report Type: 
  Country: None (occurrence: None)
  Receive Date: 20060403
  Receipt Date: 20060323
  Transmission Date: 20061013
  Serious: Yes (Death)
  Sender: FDA-Public Use
  Company Number: MEDI-0004211

PATIENT
  Age: 6 Month
  Sex: Female
  Weight: 5 kg

DRUGS (5)
  1. SYNAGIS [Suspect]
     Indication: ANTIVIRAL PROPHYLAXIS
     Dosage: 1 IN 30 D, INTRAMUSCULAR
     Route: 030
     Dates: start: 20051010, end: 20051220
  2. SYNAGIS [Suspect]
     Indication: ANTIVIRAL PROPHYLAXIS
     Dosage: 1 IN 30 D, INTRAMUSCULAR
     Route: 030
     Dates: start: 20051010
  3. SYNAGIS [Suspect]
     Indication: ANTIVIRAL PROPHYLAXIS
     Dosage: 1 IN 30 D, INTRAMUSCULAR
     Route: 030
     Dates: start: 20051107
  4. METICILINA (METICILLIN) [Concomitant]
  5. FLUIDASA (MEPYRAMINE THEOPHYLLINE ACETATE) [Concomitant]

REACTIONS (3)
  - NASOPHARYNGITIS [None]
  - SUDDEN INFANT DEATH SYNDROME [None]
  - UPPER RESPIRATORY TRACT INFECTION [None]
